FAERS Safety Report 11416754 (Version 4)
Quarter: 2016Q1

REPORT INFORMATION
  Report Type: Report from Study
  Country: BR (occurrence: BR)
  Receive Date: 20150825
  Receipt Date: 20160204
  Transmission Date: 20160525
  Serious: Yes (Hospitalization, Other)
  Sender: FDA-Public Use
  Company Number: BR-ABBVIE-15K-020-1449095-00

PATIENT
  Age: 62 Year
  Sex: Female
  Weight: 72 kg

DRUGS (8)
  1. LOSARTAN. [Concomitant]
     Active Substance: LOSARTAN
     Indication: HYPERTENSION
     Route: 048
  2. HUMIRA [Suspect]
     Active Substance: ADALIMUMAB
     Indication: PSORIATIC ARTHROPATHY
     Route: 058
     Dates: start: 20120818
  3. METHOTREXATE [Suspect]
     Active Substance: METHOTREXATE
     Indication: RHEUMATOID ARTHRITIS
     Route: 058
     Dates: end: 20150807
  4. INSULIN [Concomitant]
     Active Substance: INSULIN NOS
     Dosage: 20ML IN THE MORNING
     Route: 058
  5. METHOTREXATE [Suspect]
     Active Substance: METHOTREXATE
     Indication: ARTHRITIS
     Route: 048
     Dates: start: 20151022
  6. PRELONE [Concomitant]
     Active Substance: PREDNISOLONE
     Indication: PAIN
     Route: 048
  7. HYDROCHLOROTHIAZIDE. [Concomitant]
     Active Substance: HYDROCHLOROTHIAZIDE
     Indication: HYPERTENSION
     Route: 048
  8. INSULIN [Concomitant]
     Active Substance: INSULIN NOS
     Indication: DIABETES MELLITUS
     Dosage: 15 ML IN THE MORNING / 6 ML IN THE AFTERNOON
     Route: 058

REACTIONS (14)
  - Gait disturbance [Not Recovered/Not Resolved]
  - Muscle atrophy [Unknown]
  - Insomnia [Unknown]
  - Hypophagia [Recovered/Resolved]
  - Arthritis [Not Recovered/Not Resolved]
  - Arthralgia [Unknown]
  - Pain [Not Recovered/Not Resolved]
  - Mobility decreased [Not Recovered/Not Resolved]
  - Malaise [Unknown]
  - Pancreatitis [Recovered/Resolved]
  - Hypophagia [Recovered/Resolved]
  - Inflammation [Not Recovered/Not Resolved]
  - Liver disorder [Recovered/Resolved]
  - Hypophagia [Unknown]

NARRATIVE: CASE EVENT DATE: 201505
